FAERS Safety Report 18729975 (Version 1)
Quarter: 2021Q1

REPORT INFORMATION
  Report Type: Spontaneous
  Country: US (occurrence: US)
  Receive Date: 20210112
  Receipt Date: 20210112
  Transmission Date: 20210419
  Serious: Yes (Hospitalization)
  Sender: FDA-Public Use
  Company Number: None

PATIENT
  Age: 63 Year
  Sex: Male

DRUGS (14)
  1. MULTI VITAMIN [Concomitant]
     Active Substance: VITAMINS
  2. NOVOLOG [Concomitant]
     Active Substance: INSULIN ASPART
  3. INVOKANA [Concomitant]
     Active Substance: CANAGLIFLOZIN
  4. PREDNISONE. [Concomitant]
     Active Substance: PREDNISONE
  5. MYCOPHENOLIC [Suspect]
     Active Substance: MYCOPHENOLIC ACID
     Indication: RENAL TRANSPLANT
     Route: 048
     Dates: start: 20201103
  6. METOPROLOL. [Concomitant]
     Active Substance: METOPROLOL
  7. ATORVASTATIN [Concomitant]
     Active Substance: ATORVASTATIN
  8. PANTOPRAZOLE [Concomitant]
     Active Substance: PANTOPRAZOLE
  9. TRAMADOL. [Concomitant]
     Active Substance: TRAMADOL
  10. FISH OIL [Concomitant]
     Active Substance: FISH OIL
  11. LOSARTAN. [Concomitant]
     Active Substance: LOSARTAN
  12. CLOPIDOGREL [Concomitant]
     Active Substance: CLOPIDOGREL BISULFATE
  13. METFORMIN [Concomitant]
     Active Substance: METFORMIN HYDROCHLORIDE
  14. TACROLIMUS. [Concomitant]
     Active Substance: TACROLIMUS

REACTIONS (1)
  - Aortic valve replacement [None]

NARRATIVE: CASE EVENT DATE: 20201215
